FAERS Safety Report 7767331-9 (Version None)
Quarter: 2011Q3

REPORT INFORMATION
  Report Type: 
  Country: None (occurrence: None)
  Receive Date: 20110922
  Receipt Date: 20110405
  Transmission Date: 20111222
  Serious: No
  Sender: FDA-Public Use
  Company Number: US-ASTRAZENECA-2011SE14161

PATIENT
  Age: 38 Year
  Sex: Female

DRUGS (2)
  1. SEROQUEL [Suspect]
     Indication: BIPOLAR DISORDER
     Route: 048
  2. SEROQUEL [Suspect]
     Route: 048
     Dates: start: 20100101, end: 20110311

REACTIONS (5)
  - RESTLESSNESS [None]
  - FEELING ABNORMAL [None]
  - DRUG WITHDRAWAL SYNDROME [None]
  - DRUG DOSE OMISSION [None]
  - FORMICATION [None]
